FAERS Safety Report 5125800-4 (Version None)
Quarter: 2006Q3

REPORT INFORMATION
  Report Type: 
  Country: None (occurrence: None)
  Receive Date: 20060817
  Receipt Date: 20050810
  Transmission Date: 20061208
  Serious: Yes (Other)
  Sender: FDA-Public Use
  Company Number: 2005113528

PATIENT
  Age: 74 Year
  Sex: Female
  Weight: 88.905 kg

DRUGS (3)
  1. PREDNISONE [Suspect]
     Indication: ARTHRITIS
     Dosage: 60 MG, ORAL
     Route: 048
     Dates: start: 20000623, end: 20000829
  2. VITAMINS (VITAMINS) [Concomitant]
  3. LASIX [Concomitant]

REACTIONS (3)
  - MYOPATHY STEROID [None]
  - SKIN ATROPHY [None]
  - SKIN DISCOLOURATION [None]
